FAERS Safety Report 18355932 (Version 1)
Quarter: 2020Q4

REPORT INFORMATION
  Report Type: Report from Study
  Country: CA (occurrence: CA)
  Receive Date: 20201007
  Receipt Date: 20201007
  Transmission Date: 20210114
  Serious: Yes (Other)
  Sender: FDA-Public Use
  Company Number: CA-PFIZER INC-2020382944

PATIENT
  Sex: Male

DRUGS (4)
  1. COENZYME Q10+ [Concomitant]
     Active Substance: DIETARY SUPPLEMENT\UBIDECARENONE
  2. LAMIVUDINE. [Concomitant]
     Active Substance: LAMIVUDINE
  3. BEVACIZUMAB. [Suspect]
     Active Substance: BEVACIZUMAB
     Indication: NON-SMALL CELL LUNG CANCER
     Dosage: 900 MG 1 EVERY 3 WEEKS
     Route: 042
  4. TAGRISSO [Concomitant]
     Active Substance: OSIMERTINIB

REACTIONS (1)
  - Pulmonary oedema [Unknown]
